FAERS Safety Report 15757879 (Version 2)
Quarter: 2018Q4

REPORT INFORMATION
  Report Type: Spontaneous
  Country: DE (occurrence: DE)
  Receive Date: 20181225
  Receipt Date: 20181227
  Transmission Date: 20190205
  Serious: Yes (Hospitalization, Other)
  Sender: FDA-Public Use
  Company Number: DE-AUROBINDO-AUR-APL-2018-062256

PATIENT
  Age: 56 Year
  Sex: Male

DRUGS (1)
  1. ALENDRONIC ACID 70 [Suspect]
     Active Substance: ALENDRONIC ACID
     Indication: PRODUCT USED FOR UNKNOWN INDICATION
     Dosage: ALREADY PRESCRIBED ON 14-DEC-2016, BUT INTAKE WAS STARTED ON 07-JAN-2017
     Route: 048
     Dates: start: 20170107, end: 20170219

REACTIONS (3)
  - Mucosal necrosis [Not Recovered/Not Resolved]
  - Osteonecrosis of jaw [Not Recovered/Not Resolved]
  - Impaired healing [Not Recovered/Not Resolved]

NARRATIVE: CASE EVENT DATE: 201701
